FAERS Safety Report 5553830-7 (Version None)
Quarter: 2007Q4

REPORT INFORMATION
  Report Type: 
  Country: None (occurrence: None)
  Receive Date: 20071213
  Receipt Date: 20071203
  Transmission Date: 20080405
  Serious: Yes (Other)
  Sender: FDA-Public Use
  Company Number: ZA-ROCHE-534149

PATIENT
  Age: 23 Year
  Sex: Female
  Weight: 70.3 kg

DRUGS (1)
  1. ROACCUTANE [Suspect]
     Dosage: THE PATIENT TOOK ONLY ONE CAPSULE.
     Route: 048
     Dates: start: 20071004, end: 20071004

REACTIONS (1)
  - ABORTION INDUCED [None]
